FAERS Safety Report 15764723 (Version 1)
Quarter: 2018Q4

REPORT INFORMATION
  Report Type: Spontaneous
  Country: US (occurrence: US)
  Receive Date: 20181227
  Receipt Date: 20181227
  Transmission Date: 20190205
  Serious: No
  Sender: FDA-Public Use
  Company Number: US-BAUSCH-BL-2018-035613

PATIENT
  Age: 54 Year
  Sex: Male
  Weight: 72.19 kg

DRUGS (1)
  1. JUBLIA [Suspect]
     Active Substance: EFINACONAZOLE
     Indication: ONYCHOMYCOSIS
     Dosage: ABOUT 3 MONTHS AGO, APPLYING DAILY TO 5 TOENAILS
     Route: 061
     Dates: start: 201809

REACTIONS (1)
  - Prostatic specific antigen decreased [Not Recovered/Not Resolved]

NARRATIVE: CASE EVENT DATE: 20181216
